FAERS Safety Report 8534274-2 (Version None)
Quarter: 2012Q3

REPORT INFORMATION
  Report Type: 
  Country: None (occurrence: None)
  Receive Date: 20120711
  Receipt Date: 20120703
  Transmission Date: 20120928
  Serious: Yes (Other)
  Sender: FDA-Public Use
  Company Number: 2012AP000713

PATIENT
  Age: 28 Year
  Sex: Female
  Weight: 79.3795 kg

DRUGS (3)
  1. SERTRALINE HYDROCHLORIDE [Suspect]
     Indication: DEPRESSION
     Dosage: 150 MG;QD;PO
     Route: 048
     Dates: start: 20070101
  2. GABAPENTIN [Concomitant]
  3. NAPROXEN [Suspect]
     Indication: PRODUCT USED FOR UNKNOWN INDICATION
     Dosage: 500 MG;QD;

REACTIONS (5)
  - DEPRESSION [None]
  - INTERVERTEBRAL DISC PROTRUSION [None]
  - FIBROMYALGIA [None]
  - DRUG INEFFECTIVE [None]
  - VITAMIN D DECREASED [None]
